FAERS Safety Report 7500116-7 (Version None)
Quarter: 2011Q2

REPORT INFORMATION
  Report Type: 
  Country: None (occurrence: None)
  Receive Date: 20110524
  Receipt Date: 20100603
  Transmission Date: 20111010
  Serious: No
  Sender: FDA-Public Use
  Company Number: US-NOVEN-ALL1-2010-01714

PATIENT

DRUGS (4)
  1. DAYTRANA [Suspect]
     Dosage: 15 MG, 1X/DAY:QD
     Route: 062
     Dates: start: 20090101, end: 20100101
  2. MIRALAX [Concomitant]
  3. DAYTRANA [Suspect]
     Dosage: 10 MG, 1X/DAY:QD
     Route: 062
     Dates: start: 20080101, end: 20090101
  4. DAYTRANA [Suspect]
     Dosage: 20 MG, 1X/DAY:QD
     Route: 062
     Dates: end: 20100401

REACTIONS (3)
  - APPLICATION SITE PRURITUS [None]
  - APPLICATION SITE IRRITATION [None]
  - PRODUCT QUALITY ISSUE [None]
